FAERS Safety Report 6702635-X (Version None)
Quarter: 2010Q2

REPORT INFORMATION
  Report Type: 
  Country: None (occurrence: None)
  Receive Date: 20100429
  Receipt Date: 20100420
  Transmission Date: 20101027
  Serious: Yes (Hospitalization)
  Sender: FDA-Public Use
  Company Number: US-BAXTER-2010BH008897

PATIENT
  Age: 8 Month
  Sex: Female
  Weight: 7 kg

DRUGS (13)
  1. DIANEAL [Suspect]
     Indication: RENAL FAILURE CHRONIC
     Route: 033
  2. KAYEXALATE [Concomitant]
     Indication: BLOOD POTASSIUM INCREASED
     Route: 048
  3. FERINSOL [Concomitant]
     Indication: ANAEMIA
     Route: 048
  4. CALCITRIOL [Concomitant]
     Indication: VITAMIN SUPPLEMENTATION
     Route: 048
  5. CALCIUM CARBONATE [Concomitant]
     Indication: MINERAL SUPPLEMENTATION
     Route: 048
  6. M.C.T. OIL [Concomitant]
     Indication: MEDICAL DIET
     Route: 048
  7. SYNTHROID [Concomitant]
     Indication: HYPOTHYROIDISM
     Route: 048
  8. PREVACID [Concomitant]
     Indication: HYPERCHLORHYDRIA
     Route: 048
  9. EPOGEN [Concomitant]
     Indication: ANAEMIA
     Route: 058
  10. MULTI-VITAMINS [Concomitant]
     Indication: VITAMIN SUPPLEMENTATION
     Route: 065
  11. ALBUTEROL [Concomitant]
     Indication: SUPPLEMENTATION THERAPY
     Route: 065
  12. FLOVENT [Concomitant]
     Indication: SUPPLEMENTATION THERAPY
     Route: 065
  13. SIMILAC [Concomitant]
     Indication: DRUG USE FOR UNKNOWN INDICATION
     Route: 065

REACTIONS (6)
  - COUGH [None]
  - DIARRHOEA [None]
  - GASTROINTESTINAL DISORDER [None]
  - MEDICAL DEVICE COMPLICATION [None]
  - PYREXIA [None]
  - VOMITING [None]
